FAERS Safety Report 6709211-3 (Version None)
Quarter: 2010Q2

REPORT INFORMATION
  Report Type: 
  Country: None (occurrence: None)
  Receive Date: 20100504
  Receipt Date: 20100423
  Transmission Date: 20101027
  Serious: Yes (Other)
  Sender: FDA-Public Use
  Company Number: FR-NOVOPROD-307769

PATIENT
  Age: 76 Year
  Sex: Female

DRUGS (7)
  1. VICTOZA [Suspect]
     Indication: DRUG USE FOR UNKNOWN INDICATION
     Dosage: 0.6 MG, QD
     Dates: start: 20100405
  2. VICTOZA [Suspect]
     Dosage: 1.2 MG, QD
     Dates: start: 20100413
  3. DIAMICRON [Concomitant]
  4. ATENOLOL [Concomitant]
  5. LOXEN [Concomitant]
  6. TIMOLOL [Concomitant]
  7. TRAVATAN [Concomitant]

REACTIONS (6)
  - DECREASED APPETITE [None]
  - DIARRHOEA [None]
  - FATIGUE [None]
  - GASTROINTESTINAL PAIN [None]
  - INJECTION SITE ERYTHEMA [None]
  - TACHYCARDIA [None]
